FAERS Safety Report 19476075 (Version 1)
Quarter: 2021Q2

REPORT INFORMATION
  Report Type: Other
  Country: CN (occurrence: CN)
  Receive Date: 20210630
  Receipt Date: 20210630
  Transmission Date: 20210717
  Serious: Yes (Other)
  Sender: FDA-Public Use
  Company Number: CN-ASTELLAS-2021US023829

PATIENT
  Age: 38 Year
  Sex: Male

DRUGS (26)
  1. PROGRAF [Suspect]
     Active Substance: TACROLIMUS
     Dosage: 4.5 MG, OTHER (2 MG IN MORNING, 2.5 MG IN EVENING)
     Route: 048
     Dates: start: 20210308
  2. METHYLPREDNISOLONE. [Suspect]
     Active Substance: METHYLPREDNISOLONE
     Route: 048
     Dates: start: 20210317
  3. MYCOPHENOLATE SODIUM [Suspect]
     Active Substance: MYCOPHENOLATE SODIUM
     Route: 048
     Dates: start: 20210308
  4. GANCICLOVIR. [Concomitant]
     Active Substance: GANCICLOVIR
     Indication: ANTIVIRAL PROPHYLAXIS
     Dosage: 350 MG, TWICE DAILY (POWDER INJECTION)
     Route: 041
     Dates: start: 20210306, end: 20210312
  5. MEROPENEM. [Concomitant]
     Active Substance: MEROPENEM
     Indication: INFECTION PROPHYLAXIS
     Dosage: 1 G, THRICE DAILY (POWDER FOR INJECTION)
     Route: 041
     Dates: start: 20210305, end: 20210309
  6. PANTOLOC [Concomitant]
     Active Substance: PANTOPRAZOLE SODIUM
     Indication: MUSCLE SPASMS
  7. PROGRAF [Suspect]
     Active Substance: TACROLIMUS
     Dosage: 2 MG, ONCE DAILY (IN MORNING)
     Route: 048
     Dates: start: 20210311
  8. METHYLPREDNISOLONE. [Suspect]
     Active Substance: METHYLPREDNISOLONE
     Indication: LIVER TRANSPLANT REJECTION
     Route: 048
     Dates: start: 20210308
  9. METHYLPREDNISOLONE. [Suspect]
     Active Substance: METHYLPREDNISOLONE
     Dosage: 80 MG, ONCE DAILY (IVGTT)
     Route: 042
     Dates: start: 20210314
  10. FLUCONAZOLE. [Concomitant]
     Active Substance: FLUCONAZOLE
     Indication: PROPHYLAXIS
     Dosage: 150 MG, ONCE WEEKLY (ONCE 7 DAYS)
     Route: 048
     Dates: start: 20210307, end: 20210312
  11. TARGOCID [Concomitant]
     Active Substance: TEICOPLANIN
     Indication: INFECTION PROPHYLAXIS
     Dosage: 0.4 G, ONCE DAILY (POWDER INJECTION)
     Route: 041
     Dates: start: 20210306, end: 20210312
  12. PROGRAF [Suspect]
     Active Substance: TACROLIMUS
     Indication: LIVER TRANSPLANT REJECTION
     Route: 048
     Dates: start: 20210225
  13. MYCOPHENOLATE SODIUM [Suspect]
     Active Substance: MYCOPHENOLATE SODIUM
     Route: 048
     Dates: start: 20210309, end: 20210312
  14. ENTECAVIR. [Concomitant]
     Active Substance: ENTECAVIR
     Indication: HEPATITIS B SURFACE ANTIBODY NEGATIVE
     Dosage: 0.5 MG, ONCE DAILY
     Route: 048
     Dates: start: 20210226, end: 20210312
  15. TEICOPLANIN [Concomitant]
     Active Substance: TEICOPLANIN
     Indication: INFECTION PROPHYLAXIS
     Dosage: 0.4 G, ONCE DAILY (IVGTT)
     Route: 042
  16. MICAFUNGIN. [Concomitant]
     Active Substance: MICAFUNGIN SODIUM
     Indication: INFECTION PROPHYLAXIS
     Dosage: 100 MG, ONCE DAILY (IVGTT)
     Route: 042
     Dates: end: 20210307
  17. PANTOLOC [Concomitant]
     Active Substance: PANTOPRAZOLE SODIUM
     Indication: ACIDOSIS
     Route: 048
     Dates: start: 20210307, end: 20210311
  18. PROGRAF [Suspect]
     Active Substance: TACROLIMUS
     Dosage: 3 MG, OTHER (2 MG IN MORNING, 1 MG IN EVENING)
     Route: 048
     Dates: start: 20210309
  19. PROGRAF [Suspect]
     Active Substance: TACROLIMUS
     Dosage: 3 MG, OTHER (2 MG IN MORNING, 1 MG IN EVENING)
     Route: 048
     Dates: start: 20210312
  20. PROGRAF [Suspect]
     Active Substance: TACROLIMUS
     Route: 048
     Dates: start: 20210313
  21. PROGRAF [Suspect]
     Active Substance: TACROLIMUS
     Dosage: 3 MG, OTHER (1 MG IN MORNING, 2 MG IN EVENING)
     Route: 048
     Dates: start: 20210317
  22. METHYLPREDNISOLONE. [Suspect]
     Active Substance: METHYLPREDNISOLONE
     Dosage: 120 MG, ONCE DAILY (IVGTT)
     Route: 042
     Dates: start: 20210311
  23. METHYLPREDNISOLONE. [Suspect]
     Active Substance: METHYLPREDNISOLONE
     Dosage: 40 MG, ONCE DAILY (IVGTT)
     Route: 042
     Dates: start: 20210315
  24. PROGRAF [Suspect]
     Active Substance: TACROLIMUS
     Route: 048
     Dates: start: 20210319
  25. MYCOPHENOLATE SODIUM [Suspect]
     Active Substance: MYCOPHENOLATE SODIUM
     Indication: LIVER TRANSPLANT REJECTION
     Route: 048
     Dates: start: 20210225
  26. METHYLPREDNISOLONE. [Suspect]
     Active Substance: METHYLPREDNISOLONE
     Dosage: 80 MG, ONCE DAILY (IVGTT)
     Route: 042
     Dates: start: 20210309

REACTIONS (1)
  - Drug-induced liver injury [Recovering/Resolving]

NARRATIVE: CASE EVENT DATE: 20210309
